FAERS Safety Report 6072891-2 (Version None)
Quarter: 2009Q1

REPORT INFORMATION
  Report Type: 
  Country: None (occurrence: None)
  Receive Date: 20090204
  Receipt Date: 20080731
  Transmission Date: 20090719
  Serious: Yes (Other)
  Sender: FDA-Public Use
  Company Number: PROG00208003428

PATIENT
  Age: 72 Year
  Sex: Female
  Weight: 80 kg

DRUGS (1)
  1. PROMETRIUM [Suspect]
     Indication: SLEEP DISORDER
     Dosage: DAILY ORAL
     Route: 048
     Dates: start: 20070101, end: 20070101

REACTIONS (1)
  - CEREBROVASCULAR ACCIDENT [None]
